FAERS Safety Report 6548310-6 (Version None)
Quarter: 2010Q1

REPORT INFORMATION
  Report Type: 
  Country: None (occurrence: None)
  Receive Date: 20100124
  Receipt Date: 20090422
  Transmission Date: 20100710
  Serious: No
  Sender: FDA-Public Use
  Company Number: US-ALLERGAN-0905569US

PATIENT
  Age: 64 Year
  Sex: Female

DRUGS (2)
  1. RESTASIS [Suspect]
     Indication: DRY EYE
     Dosage: 1 GTT, SINGLE
     Route: 047
     Dates: start: 20090421, end: 20090421
  2. RESTASIS [Suspect]
     Indication: SJOGREN'S SYNDROME

REACTIONS (2)
  - EYE IRRITATION [None]
  - OCULAR DISCOMFORT [None]
